FAERS Safety Report 16689962 (Version 1)
Quarter: 2019Q3

REPORT INFORMATION
  Report Type: Spontaneous
  Country: US (occurrence: US)
  Receive Date: 20190809
  Receipt Date: 20190809
  Transmission Date: 20191004
  Serious: No
  Sender: FDA-Public Use
  Company Number: PHEH2019US032914

PATIENT
  Age: 48 Year
  Sex: Female

DRUGS (1)
  1. KLONOPIN [Suspect]
     Active Substance: CLONAZEPAM
     Indication: PRODUCT USED FOR UNKNOWN INDICATION
     Dosage: UNK
     Route: 065

REACTIONS (10)
  - Skin irritation [Unknown]
  - Constipation [Unknown]
  - Pruritus [Unknown]
  - Skin exfoliation [Unknown]
  - Onychoclasis [Unknown]
  - Drug ineffective [Unknown]
  - Insomnia [Unknown]
  - Eye swelling [Unknown]
  - Alopecia [Unknown]
  - Skin burning sensation [Unknown]
